FAERS Safety Report 4752857-2 (Version None)
Quarter: 2005Q3

REPORT INFORMATION
  Report Type: 
  Country: None (occurrence: None)
  Receive Date: 20050823
  Receipt Date: 20050815
  Transmission Date: 20060218
  Serious: Yes (Other)
  Sender: FDA-Public Use
  Company Number: 216174

PATIENT
  Age: 30 Year
  Sex: Female
  Weight: 113.6 kg

DRUGS (13)
  1. XOLAIR [Suspect]
     Indication: ASTHMA
     Dosage: 300 MG, Q2W
     Dates: start: 20050110
  2. ADVAIR DISKUS 100/50 [Concomitant]
  3. SINGULAIR [Concomitant]
  4. NEXIUM [Concomitant]
  5. FLOVENT [Concomitant]
  6. ZITHROMAX [Concomitant]
  7. LEVAQUIN [Concomitant]
  8. XOPENEX [Concomitant]
  9. VANTIN [Concomitant]
  10. AVELOX [Concomitant]
  11. CEFZIL (CEFPROXIL) [Concomitant]
  12. BIAXIN [Concomitant]
  13. ELOCON [Concomitant]

REACTIONS (14)
  - ABDOMINAL DISTENSION [None]
  - ASTHMA [None]
  - CANDIDIASIS [None]
  - CONDITION AGGRAVATED [None]
  - COUGH [None]
  - DERMATITIS ATOPIC [None]
  - DRUG DOSE OMISSION [None]
  - DYSPHAGIA [None]
  - MULTIPLE SCLEROSIS [None]
  - SINUSITIS [None]
  - SKIN HYPERPIGMENTATION [None]
  - SKIN LESION [None]
  - VISION BLURRED [None]
  - WHEEZING [None]
